FAERS Safety Report 18617461 (Version 1)
Quarter: 2020Q4

REPORT INFORMATION
  Report Type: Spontaneous
  Country: PL (occurrence: PL)
  Receive Date: 20201215
  Receipt Date: 20201215
  Transmission Date: 20210114
  Serious: Yes (Hospitalization)
  Sender: FDA-Public Use
  Company Number: PL-ACCORD-206741

PATIENT
  Age: 32 Year
  Sex: Female

DRUGS (4)
  1. SERTRALINE [Suspect]
     Active Substance: SERTRALINE HYDROCHLORIDE
     Indication: DEPRESSION
     Dosage: INCREASED TO 100 MG / DAY
     Route: 048
  2. HYDROXYZINE [Concomitant]
     Active Substance: HYDROXYZINE HYDROCHLORIDE
     Dosage: 3X25 MG
  3. ITOPRIDE [Interacting]
     Active Substance: ITOPRIDE
     Indication: DYSPEPSIA
     Dosage: 3X50 MG P.O.
     Route: 048
  4. OMEPRAZOLE. [Interacting]
     Active Substance: OMEPRAZOLE
     Indication: DYSPEPSIA
     Dosage: 1X40 MG

REACTIONS (3)
  - Headache [Recovering/Resolving]
  - Drug interaction [Unknown]
  - Paraesthesia [Recovered/Resolved]
